FAERS Safety Report 18580119 (Version 1)
Quarter: 2020Q4

REPORT INFORMATION
  Report Type: Spontaneous
  Country: US (occurrence: US)
  Receive Date: 20201204
  Receipt Date: 20201204
  Transmission Date: 20210114
  Serious: Yes (Other)
  Sender: FDA-Public Use
  Company Number: NVSC2020US323397

PATIENT
  Age: 51 Year
  Sex: Male

DRUGS (2)
  1. HYDROXYCHLOROQUINE SULFATE TABLETS USP [Suspect]
     Active Substance: HYDROXYCHLOROQUINE SULFATE
     Indication: COVID-19 PNEUMONIA
     Dosage: 400 MG, BID (DAY 1)
     Route: 065
  2. HYDROXYCHLOROQUINE SULFATE TABLETS USP [Suspect]
     Active Substance: HYDROXYCHLOROQUINE SULFATE
     Dosage: 400 MG, QD (DAYS 2-4)
     Route: 065

REACTIONS (2)
  - Product use in unapproved indication [Unknown]
  - Haemolytic anaemia [Recovering/Resolving]
